FAERS Safety Report 6398727-8 (Version None)
Quarter: 2009Q4

REPORT INFORMATION
  Report Type: 
  Country: None (occurrence: None)
  Receive Date: 20091013
  Receipt Date: 20091004
  Transmission Date: 20100525
  Serious: Yes (Other)
  Sender: FDA-Public Use
  Company Number: PHHY2009DE43964

PATIENT
  Age: 78 Year
  Sex: Female

DRUGS (5)
  1. RASILEZ HCT [Suspect]
  2. LERCANIDIPINE [Concomitant]
  3. ASPIRIN [Concomitant]
  4. BISOPROLOL [Concomitant]
     Dosage: 0.5 DF QD
  5. ENALAPRIL MALEATE [Concomitant]

REACTIONS (3)
  - DIARRHOEA [None]
  - HYPERNATRAEMIA [None]
  - HYPOKALAEMIA [None]
